FAERS Safety Report 6205376-0 (Version None)
Quarter: 2009Q2

REPORT INFORMATION
  Report Type: 
  Country: None (occurrence: None)
  Receive Date: 20090527
  Receipt Date: 20090318
  Transmission Date: 20091009
  Serious: No
  Sender: FDA-Public Use
  Company Number: US-ABBOTT-09P-163-0563351-00

PATIENT
  Sex: Female

DRUGS (3)
  1. SIMCOR [Suspect]
     Indication: BLOOD CHOLESTEROL INCREASED
  2. SIMCOR [Suspect]
     Indication: HIGH DENSITY LIPOPROTEIN DECREASED
  3. SIMCOR [Suspect]
     Indication: BLOOD TRIGLYCERIDES INCREASED

REACTIONS (2)
  - BLOOD GLUCOSE INCREASED [None]
  - DRY THROAT [None]
